FAERS Safety Report 4277497-3 (Version None)
Quarter: 2004Q1

REPORT INFORMATION
  Report Type: 
  Country: None (occurrence: None)
  Receive Date: 20040122
  Receipt Date: 20020102
  Transmission Date: 20041129
  Serious: Yes (Hospitalization)
  Sender: FDA-Public Use
  Company Number: AU-BRISTOL-MYERS SQUIBB COMPANY-11644945

PATIENT
  Age: 62 Year
  Sex: Male

DRUGS (8)
  1. PRAVASTATIN SODIUM [Suspect]
     Dosage: MOST RECENT DOSE PRIOR TO EVENT WAS 27DEC01.
     Route: 048
     Dates: start: 20010717
  2. GATIFLOXACIN [Suspect]
     Dosage: MOST RECENT DOSE PRIOR TO EVENT WAS 27DEC01(DAY 15 OF SECOND BLISTER PACK)
     Route: 048
     Dates: start: 20010808, end: 20020515
  3. METFORMIN HCL [Suspect]
     Route: 048
     Dates: start: 20010301
  4. MIXTARD HUMAN 70/30 [Suspect]
     Dosage: DOSING SCHEDULE: 42 IU DAILY IN A.M.; 34 IU DAILY IN P.M. (17:00 HRS).
     Route: 058
     Dates: start: 19910301
  5. ASPIRIN [Concomitant]
     Route: 048
     Dates: start: 19871230
  6. OXYCODONE HCL [Concomitant]
     Dosage: DOSAGE WAS VARIABLE.
     Route: 048
     Dates: start: 20010301
  7. DIGOXIN [Concomitant]
     Route: 048
     Dates: start: 20011120
  8. WARFARIN SODIUM [Concomitant]
     Dosage: DOSAGE WAS VARIABLE.
     Route: 048
     Dates: start: 20011120

REACTIONS (1)
  - HYPOGLYCAEMIA [None]
